FAERS Safety Report 4730364-0 (Version None)
Quarter: 2005Q3

REPORT INFORMATION
  Report Type: 
  Country: None (occurrence: None)
  Receive Date: 20050801
  Receipt Date: 20050607
  Transmission Date: 20060218
  Serious: Yes (Other)
  Sender: FDA-Public Use
  Company Number: US015405

PATIENT
  Age: 28 Year
  Sex: Female
  Weight: 65.7716 kg

DRUGS (5)
  1. GABITRIL [Suspect]
     Indication: ANXIETY
     Dosage: 2 MG QD ORAL
     Route: 048
     Dates: start: 20050504, end: 20050505
  2. GABITRIL [Suspect]
     Indication: ANXIETY
     Dosage: 2 MG BID ORAL
     Route: 048
     Dates: start: 20050506, end: 20050509
  3. GABITRIL [Suspect]
     Indication: ANXIETY
     Dosage: 4 MG BID ORAL
     Route: 048
     Dates: start: 20050510, end: 20050516
  4. GABITRIL [Suspect]
     Indication: ANXIETY
     Dosage: 4 MG TID ORAL
     Route: 048
     Dates: start: 20050517, end: 20050526
  5. GABITRIL [Suspect]
     Indication: ANXIETY
     Dosage: 24 MG QD ORAL
     Route: 048
     Dates: start: 20050527, end: 20050602

REACTIONS (7)
  - APHASIA [None]
  - CONFUSIONAL STATE [None]
  - CONVULSION [None]
  - COORDINATION ABNORMAL [None]
  - DISORIENTATION [None]
  - HEADACHE [None]
  - VISUAL DISTURBANCE [None]
